FAERS Safety Report 24784451 (Version 2)
Quarter: 2024Q4

REPORT INFORMATION
  Report Type: Spontaneous
  Country: TR (occurrence: TR)
  Receive Date: 20241227
  Receipt Date: 20241230
  Transmission Date: 20250115
  Serious: Yes (Hospitalization)
  Sender: PFIZER
  Company Number: TR-MLMSERVICE-20241212-PI297650-00206-1

PATIENT
  Age: 41 Year
  Sex: Male

DRUGS (10)
  1. LORAZEPAM [Suspect]
     Active Substance: LORAZEPAM
     Indication: Fear of death
     Dosage: UNK
  2. LORAZEPAM [Suspect]
     Active Substance: LORAZEPAM
     Indication: Anxiety
  3. LORAZEPAM [Suspect]
     Active Substance: LORAZEPAM
     Indication: Insomnia
  4. COLISTIN [Concomitant]
     Active Substance: COLISTIN
     Indication: Bacterial disease carrier
     Dosage: UNK
     Route: 055
  5. COLISTIN [Concomitant]
     Active Substance: COLISTIN
     Indication: Bacterial disease carrier
  6. TOBRAMYCIN [Concomitant]
     Active Substance: TOBRAMYCIN\TOBRAMYCIN SULFATE
     Indication: Bacterial disease carrier
     Dosage: UNK
     Route: 055
  7. TOBRAMYCIN [Concomitant]
     Active Substance: TOBRAMYCIN\TOBRAMYCIN SULFATE
     Indication: Bacterial disease carrier
  8. AMIKACIN [Concomitant]
     Active Substance: AMIKACIN
     Indication: Bacterial disease carrier
     Dosage: UNK
     Route: 055
  9. AMIKACIN [Concomitant]
     Active Substance: AMIKACIN
     Indication: Bacterial disease carrier
  10. OXYGEN [Concomitant]
     Active Substance: OXYGEN
     Indication: Chronic respiratory failure
     Dosage: LONG-TERM THERAPY AT HOME FOR 3 YEARS

REACTIONS (1)
  - Hypercapnia [Unknown]
